FAERS Safety Report 5166986-5 (Version None)
Quarter: 2006Q4

REPORT INFORMATION
  Report Type: 
  Country: None (occurrence: None)
  Receive Date: 20061207
  Receipt Date: 20061107
  Transmission Date: 20070319
  Serious: Yes (Other)
  Sender: FDA-Public Use
  Company Number: SE-ELI_LILLY_AND_COMPANY-SE200611001878

PATIENT
  Age: 6 Month
  Sex: Female
  Weight: 1.217 kg

DRUGS (2)
  1. YENTREVE [Suspect]
     Route: 064
     Dates: start: 20060201, end: 20060207
  2. HEPARIN [Concomitant]
     Route: 064

REACTIONS (3)
  - DRUG EXPOSURE DURING PREGNANCY [None]
  - PREMATURE BABY [None]
  - SMALL FOR DATES BABY [None]
